FAERS Safety Report 6142448-3 (Version None)
Quarter: 2009Q2

REPORT INFORMATION
  Report Type: 
  Country: None (occurrence: None)
  Receive Date: 20090403
  Receipt Date: 20090326
  Transmission Date: 20091009
  Serious: Yes (Other)
  Sender: FDA-Public Use
  Company Number: JP-B.I. PHARMACEUTICALS,INC./RIDGEFIELD-2009-BP-04065YA

PATIENT
  Age: 83 Year
  Sex: Male

DRUGS (3)
  1. TAMSULOSIN HCL [Suspect]
     Indication: BENIGN PROSTATIC HYPERPLASIA
     Route: 048
     Dates: start: 20080918
  2. SOLIFENACIN [Suspect]
     Indication: HYPERTONIC BLADDER
     Route: 048
     Dates: start: 20090129
  3. PRORANON [Concomitant]

REACTIONS (1)
  - BLOOD POTASSIUM INCREASED [None]
